FAERS Safety Report 17236734 (Version 1)
Quarter: 2020Q1

REPORT INFORMATION
  Report Type: Spontaneous
  Country: CZ (occurrence: CZ)
  Receive Date: 20200106
  Receipt Date: 20200106
  Transmission Date: 20200409
  Serious: Yes (Life-Threatening, Hospitalization, Other)
  Sender: FDA-Public Use
  Company Number: CZ-SA-2020SA001021

PATIENT
  Age: 73 Year
  Sex: Female

DRUGS (4)
  1. AMISULPRIDE [Suspect]
     Active Substance: AMISULPRIDE
     Indication: PSYCHIATRIC DISORDER PROPHYLAXIS
     Dosage: 200-400MG QD
  2. ZOLPIDEM TARTRATE. [Suspect]
     Active Substance: ZOLPIDEM TARTRATE
     Indication: PSYCHIATRIC DISORDER PROPHYLAXIS
     Dosage: 10 MG, QD
  3. VENLAFAXINE HYDROCHLORIDE. [Suspect]
     Active Substance: VENLAFAXINE HYDROCHLORIDE
     Indication: PSYCHIATRIC DISORDER PROPHYLAXIS
     Dosage: 225 MG, QD
  4. MIRTAZAPINE. [Suspect]
     Active Substance: MIRTAZAPINE
     Indication: PSYCHIATRIC DISORDER PROPHYLAXIS
     Dosage: 45 MG, QD

REACTIONS (16)
  - Muscle rigidity [Recovered/Resolved]
  - Ventricular fibrillation [Recovered/Resolved]
  - Neuroleptic malignant syndrome [Recovered/Resolved]
  - Pyrexia [Recovered/Resolved]
  - Metabolic acidosis [Recovered/Resolved]
  - Mydriasis [Recovered/Resolved]
  - Disorientation [Recovered/Resolved]
  - Gait disturbance [Recovered/Resolved]
  - Condition aggravated [Recovered/Resolved]
  - Loss of consciousness [Recovered/Resolved]
  - Myoglobin blood increased [Recovered/Resolved]
  - Confusional state [Recovered/Resolved]
  - Leukocytosis [Recovered/Resolved]
  - Muscle spasms [Recovered/Resolved]
  - Arrhythmia [Recovered/Resolved]
  - Tremor [Recovered/Resolved]
